FAERS Safety Report 10103608 (Version 2)
Quarter: 2014Q2

REPORT INFORMATION
  Report Type: Spontaneous
  Country: JP (occurrence: JP)
  Receive Date: 20140424
  Receipt Date: 20140430
  Transmission Date: 20141212
  Serious: Yes (Other)
  Sender: FDA-Public Use
  Company Number: JP-PFIZER INC-2014110586

PATIENT
  Sex: Female

DRUGS (1)
  1. ZITHROMAC [Suspect]
     Dosage: 250 MG, DAILY
     Route: 048

REACTIONS (3)
  - Laryngeal oedema [Recovered/Resolved]
  - Hypersensitivity [Unknown]
  - Dyspnoea [Unknown]
